FAERS Safety Report 18473434 (Version 1)
Quarter: 2020Q4

REPORT INFORMATION
  Report Type: Spontaneous
  Country: US (occurrence: US)
  Receive Date: 20201105
  Receipt Date: 20201105
  Transmission Date: 20210114
  Serious: No
  Sender: FDA-Public Use
  Company Number: None

PATIENT
  Age: 58 Year

DRUGS (2)
  1. HUMIRA [Suspect]
     Active Substance: ADALIMUMAB
     Indication: RHEUMATOID ARTHRITIS
     Dosage: ?          OTHER FREQUENCY:EVERY2WEEKSASDIR ;?
     Route: 058
     Dates: start: 202008
  2. HUMIRA [Suspect]
     Active Substance: ADALIMUMAB
     Indication: POLYARTHRITIS
     Dosage: ?          OTHER FREQUENCY:EVERY2WEEKSASDIR ;?
     Route: 058
     Dates: start: 202008

REACTIONS (1)
  - Sinusitis [None]
